FAERS Safety Report 7376784-X (Version None)
Quarter: 2011Q1

REPORT INFORMATION
  Report Type: 
  Country: None (occurrence: None)
  Receive Date: 20110325
  Receipt Date: 20110316
  Transmission Date: 20110831
  Serious: Yes (Hospitalization, Other)
  Sender: FDA-Public Use
  Company Number: US-ASTRAZENECA-2011SE14944

PATIENT
  Age: 28204 Day
  Sex: Female

DRUGS (8)
  1. NOVOLOG [Suspect]
     Dates: start: 20101026
  2. NOVOLOG [Suspect]
     Dates: start: 20101004, end: 20101026
  3. LISINOPRIL [Suspect]
     Dates: start: 20101118
  4. ONGLYZA [Suspect]
     Indication: TYPE 2 DIABETES MELLITUS
     Dosage: DAILY
     Route: 048
     Dates: start: 20100910
  5. LANTUS [Suspect]
     Indication: TYPE 2 DIABETES MELLITUS
     Dates: end: 20101004
  6. LANTUS [Suspect]
     Dates: start: 20101004, end: 20101026
  7. NOVOLOG [Suspect]
     Indication: TYPE 2 DIABETES MELLITUS
     Dates: end: 20101004
  8. LANTUS [Suspect]
     Dates: start: 20101026

REACTIONS (2)
  - BILIARY POLYP [None]
  - PANCREATITIS [None]
